FAERS Safety Report 18467134 (Version 1)
Quarter: 2020Q4

REPORT INFORMATION
  Report Type: Spontaneous
  Country: US (occurrence: US)
  Receive Date: 20201104
  Receipt Date: 20201104
  Transmission Date: 20210114
  Serious: Yes (Hospitalization)
  Sender: FDA-Public Use
  Company Number: None

PATIENT
  Age: 63 Year
  Sex: Male
  Weight: 261 kg

DRUGS (1)
  1. EMPAGLIFLOZIN (EMPAGLIFLOZIN 10MG TAB) [Suspect]
     Active Substance: EMPAGLIFLOZIN
     Indication: DIABETES MELLITUS
     Dates: start: 20200424, end: 20200521

REACTIONS (4)
  - Blood creatinine increased [None]
  - Blood urea increased [None]
  - Syncope [None]
  - Hypovolaemia [None]

NARRATIVE: CASE EVENT DATE: 20200520
